FAERS Safety Report 25701364 (Version 1)
Quarter: 2025Q3

REPORT INFORMATION
  Report Type: Spontaneous
  Country: EU (occurrence: EU)
  Receive Date: 20250819
  Receipt Date: 20250819
  Transmission Date: 20251021
  Serious: Yes (Other)
  Sender: AMGEN
  Company Number: EU-Vifor (International) Inc.-VIT-2023-06589

PATIENT
  Age: 65 Year
  Sex: Male

DRUGS (21)
  1. TAVNEOS [Suspect]
     Active Substance: AVACOPAN
     Indication: Granulomatosis with polyangiitis
     Dosage: 30,MG,BID
     Route: 048
     Dates: start: 20220630, end: 20230907
  2. TAVNEOS [Suspect]
     Active Substance: AVACOPAN
     Indication: Lung disorder
  3. RIFAMPIN [Interacting]
     Active Substance: RIFAMPIN
     Indication: Product used for unknown indication
     Route: 065
  4. ISONIAZID [Suspect]
     Active Substance: ISONIAZID
     Indication: Antibiotic prophylaxis
     Route: 065
  5. PREDNISONE [Concomitant]
     Active Substance: PREDNISONE
     Indication: Anti-neutrophil cytoplasmic antibody positive vasculitis
     Dosage: 12.5,MG,QD
     Route: 048
     Dates: start: 202206
  6. PREDNISONE [Concomitant]
     Active Substance: PREDNISONE
     Route: 048
     Dates: start: 20230517
  7. RITUXIMAB [Concomitant]
     Active Substance: RITUXIMAB
     Indication: Anti-neutrophil cytoplasmic antibody positive vasculitis
     Dosage: FOR 4 CONSECUTIVE WEEKS
     Route: 065
     Dates: start: 202206
  8. RITUXIMAB [Concomitant]
     Active Substance: RITUXIMAB
     Route: 040
     Dates: start: 20220609
  9. FONDAPARINUX [Concomitant]
     Active Substance: FONDAPARINUX
     Indication: Deep vein thrombosis
     Dosage: 7.5,MG,QD
     Route: 058
     Dates: start: 202207
  10. SULFAMETHOXAZOLE\TRIMETHOPRIM [Concomitant]
     Active Substance: SULFAMETHOXAZOLE\TRIMETHOPRIM
     Indication: Prophylaxis
     Route: 048
     Dates: start: 20220609
  11. DENOSUMAB [Concomitant]
     Active Substance: DENOSUMAB
     Indication: Prophylaxis
     Route: 058
     Dates: start: 202206
  12. ERYTHROPOIETIN [Concomitant]
     Active Substance: ERYTHROPOIETIN
     Indication: Chronic kidney disease
     Dosage: 60,UG,QOW
     Route: 058
     Dates: start: 202206
  13. ERYTHROPOIETIN [Concomitant]
     Active Substance: ERYTHROPOIETIN
     Indication: Anaemia
  14. SEMAGLUTIDE [Concomitant]
     Active Substance: SEMAGLUTIDE
     Indication: Diabetes mellitus
     Dosage: .5,MG,QW
     Route: 058
     Dates: start: 202206
  15. INSULIN NOS [Concomitant]
     Active Substance: INSULIN NOS
     Indication: Diabetes mellitus
     Dosage: 9,IU,QD
     Route: 058
     Dates: start: 202206
  16. CANDESARTAN [Concomitant]
     Active Substance: CANDESARTAN
     Indication: Hypertension
     Route: 048
     Dates: start: 202206
  17. FOLIC ACID [Concomitant]
     Active Substance: FOLIC ACID
     Indication: Hyperhomocysteinaemia
     Route: 048
     Dates: start: 202206
  18. PREGABALIN [Concomitant]
     Active Substance: PREGABALIN
     Indication: Neuropathy peripheral
     Route: 048
     Dates: start: 202206
  19. PANTOPRAZOLE [Concomitant]
     Active Substance: PANTOPRAZOLE
     Indication: Gastrointestinal disorder
     Route: 048
     Dates: start: 202206
  20. ENOXAPARIN [Concomitant]
     Active Substance: ENOXAPARIN
     Indication: Deep vein thrombosis
     Route: 058
     Dates: start: 202206
  21. CHOLECALCIFEROL [Concomitant]
     Active Substance: CHOLECALCIFEROL
     Indication: Osteoporosis prophylaxis
     Dosage: 100000,IU,QMT
     Route: 048
     Dates: start: 202206

REACTIONS (7)
  - Lower urinary tract symptoms [Not Recovered/Not Resolved]
  - JC polyomavirus test positive [Not Recovered/Not Resolved]
  - Product temperature excursion issue [Unknown]
  - Labelled drug-drug interaction issue [Unknown]
  - Mononeuropathy multiplex [Unknown]
  - Condition aggravated [Unknown]
  - Interferon gamma release assay positive [Unknown]

NARRATIVE: CASE EVENT DATE: 20220822
